FAERS Safety Report 16206201 (Version 1)
Quarter: 2019Q2

REPORT INFORMATION
  Report Type: Spontaneous
  Country: US (occurrence: US)
  Receive Date: 20190416
  Receipt Date: 20190416
  Transmission Date: 20190711
  Serious: Yes (Other)
  Sender: FDA-Public Use
  Company Number: None

PATIENT
  Age: 44 Year
  Sex: Female
  Weight: 72 kg

DRUGS (2)
  1. HYDROCODONE-ACETAMIN 7.5-325 [Suspect]
     Active Substance: ACETAMINOPHEN\HYDROCODONE
     Indication: COSTOCHONDRITIS
     Dosage: ?          QUANTITY:120 TABLET(S);?
     Route: 048
  2. HYDROCODONE-ACETAMIN 7.5-325 [Suspect]
     Active Substance: ACETAMINOPHEN\HYDROCODONE
     Indication: FIBROMYALGIA
     Dosage: ?          QUANTITY:120 TABLET(S);?
     Route: 048

REACTIONS (6)
  - Headache [None]
  - Nausea [None]
  - Product substitution issue [None]
  - Abdominal pain upper [None]
  - Dizziness [None]
  - Pain [None]

NARRATIVE: CASE EVENT DATE: 20190329
